FAERS Safety Report 8599698-6 (Version None)
Quarter: 2012Q3

REPORT INFORMATION
  Report Type: 
  Country: None (occurrence: None)
  Receive Date: 20120816
  Receipt Date: 20120809
  Transmission Date: 20120928
  Serious: Yes (Death)
  Sender: FDA-Public Use
  Company Number: DE-CELGENEUS-062-21880-12050283

PATIENT

DRUGS (6)
  1. CYCLOPHOSPHAMIDE [Concomitant]
     Indication: MULTIPLE MYELOMA
     Dosage: 120 MG/KG
     Route: 065
  2. ATG FRESEINUS [Concomitant]
     Indication: MULTIPLE MYELOMA
     Dosage: 20 MG/KG
     Route: 065
  3. NEUPOGEN [Concomitant]
     Route: 041
  4. REVLIMID [Suspect]
     Indication: MULTIPLE MYELOMA
     Route: 048
  5. BUSULFAN [Concomitant]
     Dosage: 11.2 MG/KG
     Route: 041
  6. BUSULFAN [Concomitant]
     Indication: MULTIPLE MYELOMA
     Dosage: 12.2 MG/KG
     Route: 041

REACTIONS (1)
  - MULTI-ORGAN FAILURE [None]
